FAERS Safety Report 16257829 (Version 1)
Quarter: 2019Q2

REPORT INFORMATION
  Report Type: Report from Study
  Country: US (occurrence: US)
  Receive Date: 20190430
  Receipt Date: 20190430
  Transmission Date: 20190711
  Serious: Yes (Hospitalization)
  Sender: FDA-Public Use
  Company Number: US-JNJFOC-20190441635

PATIENT
  Age: 69 Year
  Sex: Male

DRUGS (4)
  1. CENTRUM [Concomitant]
     Active Substance: VITAMINS
  2. IMBRUVICA [Suspect]
     Active Substance: IBRUTINIB
     Indication: LYMPHOCYTIC LEUKAEMIA
     Route: 048
     Dates: start: 20180710
  3. LISINOPRIL. [Concomitant]
     Active Substance: LISINOPRIL
  4. FENOFIBRATE. [Concomitant]
     Active Substance: FENOFIBRATE

REACTIONS (1)
  - Swelling face [Unknown]

NARRATIVE: CASE EVENT DATE: 201904
